FAERS Safety Report 14304996 (Version 1)
Quarter: 2017Q4

REPORT INFORMATION
  Report Type: Spontaneous
  Country: JP (occurrence: JP)
  Receive Date: 20171219
  Receipt Date: 20171219
  Transmission Date: 20180321
  Serious: Yes (Other)
  Sender: FDA-Public Use
  Company Number: JP-OTSUKA-03100-JPN-06-0491

PATIENT
  Age: 63 Year
  Sex: Female

DRUGS (9)
  1. RISPERDAL [Concomitant]
     Active Substance: RISPERIDONE
     Dosage: 6 MG, QD
     Route: 048
     Dates: start: 20060809
  2. HALCION [Concomitant]
     Active Substance: TRIAZOLAM
     Indication: INSOMNIA
     Dosage: 0.25 MG, QD
     Route: 048
     Dates: start: 20060816
  3. ABILIFY [Suspect]
     Active Substance: ARIPIPRAZOLE
     Indication: HALLUCINATION
     Dosage: 6 MG, BID
     Route: 048
     Dates: start: 20060816, end: 20060908
  4. ABILIFY [Suspect]
     Active Substance: ARIPIPRAZOLE
     Indication: DELUSION
  5. RISPERDAL [Concomitant]
     Active Substance: RISPERIDONE
     Indication: DELUSION
     Dosage: 8 MG, UNK
     Route: 048
     Dates: start: 20060807, end: 20060808
  6. QUETIAPINE FUMARATE. [Concomitant]
     Active Substance: QUETIAPINE FUMARATE
     Indication: PRODUCT USED FOR UNKNOWN INDICATION
     Dosage: 100 MG, QD
     Route: 048
     Dates: start: 20060809, end: 20060816
  7. RISPERDAL [Concomitant]
     Active Substance: RISPERIDONE
     Indication: HALLUCINATION
     Dosage: 2 MG, TID
     Route: 048
     Dates: start: 20060615, end: 20060806
  8. TASMOLIN [Concomitant]
     Active Substance: BIPERIDEN
     Indication: PARKINSONISM
     Dosage: 1 MG, TID
     Route: 048
     Dates: start: 20060615
  9. HYBERNA [Concomitant]
     Indication: PARKINSONISM
     Dosage: 25 MG, QD
     Route: 048
     Dates: start: 20060615

REACTIONS (2)
  - Agitation [Recovering/Resolving]
  - Delusion [Recovering/Resolving]

NARRATIVE: CASE EVENT DATE: 20060908
